FAERS Safety Report 10783043 (Version 1)
Quarter: 2015Q1

REPORT INFORMATION
  Report Type: Spontaneous
  Country: US (occurrence: None)
  Receive Date: 20150209
  Receipt Date: 20150209
  Transmission Date: 20150721
  Serious: No
  Sender: FDA-Public Use
  Company Number: None

PATIENT
  Age: 52 Year
  Sex: Female

DRUGS (1)
  1. HUMIRA [Suspect]
     Active Substance: ADALIMUMAB
     Indication: ARTHRITIS
     Dosage: THE CONTENTS OF 1 PEN
     Route: 058
     Dates: start: 20141209

REACTIONS (1)
  - Dysuria [None]

NARRATIVE: CASE EVENT DATE: 20150206
